FAERS Safety Report 5554276-8 (Version None)
Quarter: 2007Q4

REPORT INFORMATION
  Report Type: 
  Country: None (occurrence: None)
  Receive Date: 20071213
  Receipt Date: 20071206
  Transmission Date: 20080405
  Serious: Yes (Hospitalization)
  Sender: FDA-Public Use
  Company Number: B0456575A

PATIENT
  Age: 44 Year
  Sex: Female
  Weight: 70 kg

DRUGS (2)
  1. LAPATINIB [Suspect]
     Indication: BREAST CANCER
     Route: 048
     Dates: start: 20060712, end: 20070122
  2. LORASTINE [Concomitant]

REACTIONS (7)
  - DERMATITIS ACNEIFORM [None]
  - FATIGUE [None]
  - HEPATOTOXICITY [None]
  - HYPERBILIRUBINAEMIA [None]
  - JAUNDICE [None]
  - RASH [None]
  - TRANSAMINASES INCREASED [None]
